FAERS Safety Report 10846680 (Version 1)
Quarter: 2015Q1

REPORT INFORMATION
  Report Type: Spontaneous
  Country: US (occurrence: US)
  Receive Date: 20150220
  Receipt Date: 20150220
  Transmission Date: 20150721
  Serious: No
  Sender: FDA-Public Use
  Company Number: US-ASTRAZENECA-2015SE13276

PATIENT
  Sex: Female

DRUGS (1)
  1. PRILOSEC [Suspect]
     Active Substance: OMEPRAZOLE MAGNESIUM
     Route: 048

REACTIONS (4)
  - Dyspepsia [Unknown]
  - Gastroenteritis viral [Not Recovered/Not Resolved]
  - Abdominal pain upper [Unknown]
  - Drug ineffective [Unknown]
